FAERS Safety Report 17256522 (Version 1)
Quarter: 2020Q1

REPORT INFORMATION
  Report Type: Spontaneous
  Country: US (occurrence: US)
  Receive Date: 20200110
  Receipt Date: 20200110
  Transmission Date: 20200409
  Serious: No
  Sender: FDA-Public Use
  Company Number: US-TEVA-2020-US-1165577

PATIENT
  Age: 28 Year
  Sex: Female

DRUGS (2)
  1. UNSPECIFIED ESTROGEN [Concomitant]
     Dosage: PATCH
     Route: 065
  2. AYGESTIN [Suspect]
     Active Substance: NORETHINDRONE ACETATE
     Indication: HORMONE THERAPY
     Route: 065

REACTIONS (1)
  - Alopecia [Unknown]
